FAERS Safety Report 6646648-5 (Version None)
Quarter: 2010Q1

REPORT INFORMATION
  Report Type: 
  Country: None (occurrence: None)
  Receive Date: 20100317
  Receipt Date: 20100302
  Transmission Date: 20100710
  Serious: Yes (Hospitalization)
  Sender: FDA-Public Use
  Company Number: AMAG201000068

PATIENT
  Age: 61 Year
  Sex: Female

DRUGS (2)
  1. FERAHEME [Suspect]
     Indication: IRON DEFICIENCY ANAEMIA
     Dosage: 510 MG, SINGLE, INTRAVENOUS; 510 MG, SINGLE, INTRAVENOUS
     Route: 042
     Dates: start: 20100128, end: 20100128
  2. FERAHEME [Suspect]
     Indication: IRON DEFICIENCY ANAEMIA
     Dosage: 510 MG, SINGLE, INTRAVENOUS; 510 MG, SINGLE, INTRAVENOUS
     Route: 042
     Dates: start: 20100202, end: 20100202

REACTIONS (5)
  - ARRHYTHMIA [None]
  - BLOOD GLUCOSE INCREASED [None]
  - CARDIAC ARREST [None]
  - HAEMODIALYSIS [None]
  - VENTRICULAR FIBRILLATION [None]
